FAERS Safety Report 25708152 (Version 2)
Quarter: 2025Q4

REPORT INFORMATION
  Report Type: Report from Study
  Country: MX (occurrence: MX)
  Receive Date: 20250820
  Receipt Date: 20251008
  Transmission Date: 20260118
  Serious: Yes (Hospitalization)
  Sender: ABBVIE
  Company Number: MX-ABBVIE-6423097

PATIENT
  Age: 65 Year
  Sex: Female
  Weight: 76 kg

DRUGS (1)
  1. VENCLEXTA [Suspect]
     Active Substance: VENETOCLAX
     Indication: Chronic lymphocytic leukaemia
     Dosage: FREQUENCY TEXT: 400MG EVERY 24HOURS
     Route: 048
     Dates: start: 20241223, end: 20250813

REACTIONS (6)
  - Blister rupture [Recovering/Resolving]
  - Infection [Unknown]
  - Inflammation [Recovered/Resolved]
  - Blister [Recovering/Resolving]
  - Peripheral swelling [Recovered/Resolved]
  - Arthropod bite [Recovering/Resolving]

NARRATIVE: CASE EVENT DATE: 20250101
